FAERS Safety Report 5092561-7 (Version None)
Quarter: 2006Q3

REPORT INFORMATION
  Report Type: 
  Country: None (occurrence: None)
  Receive Date: 20060828
  Receipt Date: 20060828
  Transmission Date: 20061208
  Serious: Yes (Other)
  Sender: FDA-Public Use
  Company Number: None

PATIENT
  Age: 49 Year
  Sex: Female
  Weight: 79.3795 kg

DRUGS (1)
  1. AMITRIPTYLINE HCL [Suspect]
     Indication: DEPRESSION
     Dosage: 50 MG 1/DAY PO
     Route: 048
     Dates: start: 20060805, end: 20060823

REACTIONS (8)
  - CRYING [None]
  - INSOMNIA [None]
  - IRRITABILITY [None]
  - LETHARGY [None]
  - MOOD ALTERED [None]
  - PALPITATIONS [None]
  - PHARMACEUTICAL PRODUCT COUNTERFEIT [None]
  - SUICIDAL IDEATION [None]
